FAERS Safety Report 6094436-3 (Version None)
Quarter: 2009Q1

REPORT INFORMATION
  Report Type: 
  Country: None (occurrence: None)
  Receive Date: 20090226
  Receipt Date: 20090219
  Transmission Date: 20090719
  Serious: Yes (Hospitalization)
  Sender: FDA-Public Use
  Company Number: JP-SANOFI-SYNTHELABO-A01200901378

PATIENT
  Age: 78 Year
  Sex: Male

DRUGS (3)
  1. TAKEPRON [Suspect]
     Indication: DRUG USE FOR UNKNOWN INDICATION
     Dosage: UNK
     Route: 065
     Dates: start: 20080703, end: 20081222
  2. PLAVIX [Suspect]
     Indication: PROPHYLAXIS
     Route: 048
     Dates: start: 20080802, end: 20081222
  3. PLAVIX [Suspect]
     Indication: CEREBRAL INFARCTION
     Route: 048
     Dates: start: 20080802, end: 20081222

REACTIONS (3)
  - HYPEREOSINOPHILIC SYNDROME [None]
  - OEDEMA PERIPHERAL [None]
  - RASH [None]
